FAERS Safety Report 23691876 (Version 1)
Quarter: 2024Q1

REPORT INFORMATION
  Report Type: Spontaneous
  Country: US (occurrence: None)
  Receive Date: 20240329
  Receipt Date: 20240329
  Transmission Date: 20240410
  Serious: No
  Sender: FDA-Public Use
  Company Number: None

PATIENT
  Sex: Male

DRUGS (4)
  1. HUMIRA [Suspect]
     Active Substance: ADALIMUMAB
     Dosage: FREQUENCY : EVERY OTHER WEEK;?
     Route: 058
     Dates: start: 20240123
  2. HUMIRA PEN-PEDIATRIC UC S [Concomitant]
  3. IRON CHW PEDIATRI [Concomitant]
  4. VITAMIN D3 CAP 50MCG [Concomitant]

REACTIONS (1)
  - Hospitalisation [None]
